FAERS Safety Report 22611047 (Version 1)
Quarter: 2023Q2

REPORT INFORMATION
  Report Type: Spontaneous
  Country: US (occurrence: None)
  Receive Date: 20230615
  Receipt Date: 20230615
  Transmission Date: 20230721
  Serious: Yes (Hospitalization)
  Sender: FDA-Public Use
  Company Number: None

PATIENT
  Sex: Female

DRUGS (8)
  1. IBRANCE [Suspect]
     Active Substance: PALBOCICLIB
     Indication: Breast cancer female
     Dosage: FREQUENCY : DAILY;?OTHER ROUTE : PO 21D ON 7D OFF;?
     Route: 050
  2. AMLODIPINE [Concomitant]
  3. FASLODEX [Concomitant]
     Active Substance: FULVESTRANT
  4. GABAPENTIN [Concomitant]
  5. LISINOPRIL [Concomitant]
  6. VITAMIN B12 SL [Concomitant]
  7. VITAMIN D3 [Concomitant]
     Active Substance: CHOLECALCIFEROL
  8. ZINC [Concomitant]
     Active Substance: ZINC

REACTIONS (1)
  - Hospitalisation [None]
